FAERS Safety Report 5166853-7 (Version None)
Quarter: 2006Q4

REPORT INFORMATION
  Report Type: 
  Country: None (occurrence: None)
  Receive Date: 20061207
  Receipt Date: 20061124
  Transmission Date: 20070319
  Serious: Yes (Other)
  Sender: FDA-Public Use
  Company Number: PHBS2006BE18426

PATIENT
  Age: 60 Year
  Sex: Male

DRUGS (5)
  1. ZOMETA [Suspect]
     Indication: METASTASES TO BONE
     Dosage: 4 MG, UNK
     Route: 065
     Dates: start: 20050501, end: 20061108
  2. CYCLOPHOSPHAMIDE + EPIRUBICIN [Concomitant]
     Dosage: 4 CYCLES
     Route: 065
     Dates: end: 20051107
  3. RADIOTHERAPY [Concomitant]
     Indication: METASTASES TO CENTRAL NERVOUS SYSTEM
     Dosage: UNK, UNK
     Dates: start: 20060301
  4. ENDOXAN [Concomitant]
     Indication: METASTASES TO CENTRAL NERVOUS SYSTEM
     Dosage: UNK, UNK
     Route: 048
     Dates: start: 20060301
  5. IRINOTECAN HCL [Concomitant]
     Dosage: UNK, UNK
     Dates: start: 20060701, end: 20060801

REACTIONS (6)
  - ASTHENIA [None]
  - BONE DISORDER [None]
  - IMPAIRED HEALING [None]
  - METASTASES TO CENTRAL NERVOUS SYSTEM [None]
  - OSTEONECROSIS [None]
  - TOOTH EXTRACTION [None]
